FAERS Safety Report 20238700 (Version 1)
Quarter: 2021Q4

REPORT INFORMATION
  Report Type: Spontaneous
  Country: US (occurrence: None)
  Receive Date: 20211227
  Receipt Date: 20211227
  Transmission Date: 20220303
  Serious: Yes (Other)
  Sender: FDA-Public Use
  Company Number: None

PATIENT
  Age: 63 Year
  Sex: Male

DRUGS (1)
  1. BAMLANIVIMAB\ETESEVIMAB [Suspect]
     Active Substance: BAMLANIVIMAB\ETESEVIMAB
     Indication: COVID-19
     Dosage: FREQUENCY : ONCE;?
     Route: 042
     Dates: start: 20211209, end: 20211209

REACTIONS (5)
  - Vision blurred [None]
  - Hypoaesthesia [None]
  - Hyperhidrosis [None]
  - Loss of consciousness [None]
  - Dyskinesia [None]

NARRATIVE: CASE EVENT DATE: 20211209
